FAERS Safety Report 5145881-1 (Version None)
Quarter: 2006Q4

REPORT INFORMATION
  Report Type: 
  Country: None (occurrence: None)
  Receive Date: 20061106
  Receipt Date: 20061106
  Transmission Date: 20070319
  Serious: No
  Sender: FDA-Public Use
  Company Number: None

PATIENT

DRUGS (1)
  1. PREMARIN [Suspect]
     Indication: PREOPERATIVE CARE
     Dosage: 1 GRAM VAGINALLY    TWICE PER WEEK  (DURATION: ONE TIME ONLY)
     Dates: start: 20061103, end: 20061104

REACTIONS (5)
  - DRUG DISPENSING ERROR [None]
  - GASTRIC ULCER [None]
  - INCORRECT DOSE ADMINISTERED [None]
  - MEDICATION ERROR [None]
  - PRECANCEROUS CELLS PRESENT [None]
